FAERS Safety Report 9056135 (Version 2)
Quarter: 2013Q2

REPORT INFORMATION
  Report Type: Spontaneous
  Country: US (occurrence: US)
  Receive Date: 20130205
  Receipt Date: 20130410
  Transmission Date: 20140414
  Serious: Yes (Hospitalization, Other)
  Sender: FDA-Public Use
  Company Number: US-BRISTOL-MYERS SQUIBB COMPANY-17327503

PATIENT
  Age: 65 Year
  Sex: Female
  Weight: 100.68 kg

DRUGS (8)
  1. ORENCIA [Suspect]
     Dosage: INFUSION, RECENT DOSE: BEFORE 28NOV12?LOT#2F71222,EXP:20APR, OCT2012?2S69064-MAY2?SRAT DAT:NOV11
     Route: 042
     Dates: start: 20120927
  2. METHOTREXATE [Concomitant]
  3. PRILOSEC [Concomitant]
  4. CELEBREX [Concomitant]
  5. FOLIC ACID [Concomitant]
  6. ASPIRIN [Concomitant]
  7. B COMPLEX 100 [Concomitant]
  8. CLARITIN [Concomitant]

REACTIONS (5)
  - Pneumonia [Recovering/Resolving]
  - Pericardial effusion [Recovering/Resolving]
  - Pleural effusion [Recovering/Resolving]
  - Cardiomegaly [Recovering/Resolving]
  - Pericarditis [Unknown]
